FAERS Safety Report 7757730-3 (Version None)
Quarter: 2011Q3

REPORT INFORMATION
  Report Type: 
  Country: None (occurrence: None)
  Receive Date: 20110916
  Receipt Date: 20101015
  Transmission Date: 20111222
  Serious: No
  Sender: FDA-Public Use
  Company Number: US-ALLERGAN-1013309US

PATIENT
  Age: 41 Year
  Sex: Male

DRUGS (1)
  1. ACUVAIL [Suspect]
     Indication: PRODUCT USED FOR UNKNOWN INDICATION

REACTIONS (5)
  - EYE PAIN [None]
  - EYE DISORDER [None]
  - OCULAR HYPERAEMIA [None]
  - LACRIMATION INCREASED [None]
  - CORNEAL INFILTRATES [None]
